FAERS Safety Report 8809115 (Version 2)
Quarter: 2012Q4

REPORT INFORMATION
  Report Type: 
  Country: JP (occurrence: JP)
  Receive Date: 20120926
  Receipt Date: 20121016
  Transmission Date: 20130627
  Serious: Yes (Hospitalization, Other)
  Sender: FDA-Public Use
  Company Number: JP-PFIZER INC-2012226124

PATIENT
  Age: 50 Year
  Sex: Male

DRUGS (2)
  1. LYRICA [Suspect]
     Indication: DIABETIC NEUROPATHY
     Dosage: 25 mg, 1x/day
     Route: 048
     Dates: start: 20120724, end: 20120806
  2. LYRICA [Suspect]
     Dosage: 25 mg, 2x/day
     Route: 048
     Dates: start: 20120807, end: 20120907

REACTIONS (1)
  - White blood cell count increased [Recovering/Resolving]
